FAERS Safety Report 12572714 (Version 1)
Quarter: 2016Q3

REPORT INFORMATION
  Report Type: Spontaneous
  Country: FR (occurrence: FR)
  Receive Date: 20160720
  Receipt Date: 20160720
  Transmission Date: 20161109
  Serious: Yes (Hospitalization)
  Sender: FDA-Public Use
  Company Number: FR-ROCHE-1797140

PATIENT
  Age: 24 Year
  Sex: Female

DRUGS (8)
  1. METHYLPREDNISOLONE. [Concomitant]
     Active Substance: METHYLPREDNISOLONE
     Indication: PREMEDICATION
  2. MABTHERA [Suspect]
     Active Substance: RITUXIMAB
     Route: 041
     Dates: start: 20160525
  3. MABTHERA [Suspect]
     Active Substance: RITUXIMAB
     Dosage: 1 INFUSION
     Route: 041
     Dates: start: 201601
  4. MABTHERA [Suspect]
     Active Substance: RITUXIMAB
     Indication: THROMBOTIC THROMBOCYTOPENIC PURPURA
     Dosage: 5 INFUSIONS
     Route: 041
     Dates: start: 2009
  5. MABTHERA [Suspect]
     Active Substance: RITUXIMAB
     Dosage: 1 INFUSION
     Route: 041
     Dates: start: 201605
  6. DEXCHLORPHENIRAMINE [Concomitant]
     Active Substance: DEXCHLORPHENIRAMINE
     Indication: PREMEDICATION
     Route: 065
  7. MABTHERA [Suspect]
     Active Substance: RITUXIMAB
     Dosage: 3 INFUSIONS
     Route: 041
     Dates: start: 201505
  8. EBASTINE [Concomitant]
     Active Substance: EBASTINE
     Indication: PREMEDICATION
     Route: 065
     Dates: start: 20160525

REACTIONS (5)
  - Abdominal pain [Recovered/Resolved]
  - Hypotonia [Recovered/Resolved]
  - Urticaria [Recovered/Resolved]
  - Asthenia [Recovered/Resolved]
  - Arthralgia [Recovered/Resolved]

NARRATIVE: CASE EVENT DATE: 20160601
